FAERS Safety Report 25165236 (Version 1)
Quarter: 2025Q2

REPORT INFORMATION
  Report Type: Spontaneous
  Country: FR (occurrence: FR)
  Receive Date: 20250407
  Receipt Date: 20250407
  Transmission Date: 20250716
  Serious: Yes (Hospitalization, Other)
  Sender: CHEPLAPHARM
  Company Number: None

PATIENT
  Age: 59 Year
  Sex: Male
  Weight: 52.4 kg

DRUGS (16)
  1. QUETIAPINE [Suspect]
     Active Substance: QUETIAPINE
     Indication: Mental disorder
     Route: 048
     Dates: start: 202411, end: 20250116
  2. NAPROXEN [Concomitant]
     Active Substance: NAPROXEN
  3. NITRAZEPAM [Concomitant]
     Active Substance: NITRAZEPAM
     Indication: Mental disorder
  4. TRIHEXYPHENIDYL HYDROCHLORIDE [Concomitant]
     Active Substance: TRIHEXYPHENIDYL HYDROCHLORIDE
  5. PAROXETINE [Concomitant]
     Active Substance: PAROXETINE
     Indication: Mental disorder
  6. XANAX [Concomitant]
     Active Substance: ALPRAZOLAM
     Indication: Mental disorder
  7. LEVOTHYROXINE [Concomitant]
     Active Substance: LEVOTHYROXINE
  8. MESTINON [Concomitant]
     Active Substance: PYRIDOSTIGMINE BROMIDE
  9. PANTOPRAZOLE [Concomitant]
     Active Substance: PANTOPRAZOLE
  10. FOLIC ACID [Concomitant]
     Active Substance: FOLIC ACID
  11. LOXAPINE [Concomitant]
     Active Substance: LOXAPINE
     Indication: Mental disorder
  12. SPAGULAX [Concomitant]
     Active Substance: HERBALS\PLANTAGO OVATA SEED
  13. GAVISCON [Concomitant]
     Active Substance: ALUMINUM HYDROXIDE\MAGNESIUM CARBONATE
  14. LACTULOSE [Concomitant]
     Active Substance: LACTULOSE
  15. AUGMENTIN [Concomitant]
     Active Substance: AMOXICILLIN\CLAVULANATE POTASSIUM
  16. LASIX [Concomitant]
     Active Substance: FUROSEMIDE

REACTIONS (8)
  - Hepatic cytolysis [Recovering/Resolving]
  - Altered state of consciousness [Unknown]
  - Fall [Unknown]
  - Wound [Unknown]
  - Acute kidney injury [Recovering/Resolving]
  - Cardiogenic shock [Recovering/Resolving]
  - Interstitial lung disease [Unknown]
  - Influenza like illness [Unknown]

NARRATIVE: CASE EVENT DATE: 20241201
